FAERS Safety Report 5797519-8 (Version None)
Quarter: 2008Q3

REPORT INFORMATION
  Report Type: 
  Country: None (occurrence: None)
  Receive Date: 20080702
  Receipt Date: 20080630
  Transmission Date: 20090109
  Serious: Yes (Hospitalization)
  Sender: FDA-Public Use
  Company Number: TR-SP-2008-00493

PATIENT
  Age: 62 Year
  Sex: Male

DRUGS (1)
  1. IMMUCYST [Suspect]
     Indication: BLADDER CANCER
     Dosage: ONCE
     Route: 042
     Dates: start: 20080208

REACTIONS (14)
  - ABDOMINAL PAIN [None]
  - CARDIAC ARREST [None]
  - CHILLS [None]
  - DISSEMINATED TUBERCULOSIS [None]
  - HEPATIC ENCEPHALOPATHY [None]
  - HEPATIC FAILURE [None]
  - HEPATITIS [None]
  - INCORRECT ROUTE OF DRUG ADMINISTRATION [None]
  - LETHARGY [None]
  - LYMPHOHISTIOCYTOSIS [None]
  - OEDEMA PERIPHERAL [None]
  - PYREXIA [None]
  - RESPIRATORY FAILURE [None]
  - VOMITING [None]
